FAERS Safety Report 4359859-9 (Version None)
Quarter: 2004Q2

REPORT INFORMATION
  Report Type: 
  Country: None (occurrence: None)
  Receive Date: 20040517
  Receipt Date: 20040506
  Transmission Date: 20050107
  Serious: Yes (Hospitalization)
  Sender: FDA-Public Use
  Company Number: ZONI001324

PATIENT
  Age: 25 Year
  Sex: Female

DRUGS (3)
  1. EXCEGRAN (ZONISAMIDE) [Suspect]
     Indication: POST-TRAUMATIC EPILEPSY
     Dosage: 200 MG DAILY ORAL
     Route: 048
     Dates: start: 20020407, end: 20020516
  2. ALTAT (ROXATIDINE) [Concomitant]
  3. ETIZOLAM (ETIZOLAM) [Concomitant]

REACTIONS (5)
  - DRUG HYPERSENSITIVITY [None]
  - HEPATIC FAILURE [None]
  - HUMAN HERPESVIRUS 6 INFECTION [None]
  - PIGMENTATION DISORDER [None]
  - RASH PUSTULAR [None]
